FAERS Safety Report 10065116 (Version 1)
Quarter: 2014Q2

REPORT INFORMATION
  Report Type: Spontaneous
  Country: MY (occurrence: MY)
  Receive Date: 20140408
  Receipt Date: 20140408
  Transmission Date: 20141212
  Serious: Yes (Hospitalization)
  Sender: FDA-Public Use
  Company Number: MY-SA-2014SA042213

PATIENT
  Age: 59 Year
  Sex: Male
  Weight: 71 kg

DRUGS (4)
  1. ELOXATIN [Suspect]
     Indication: RECTAL CANCER
     Route: 042
     Dates: start: 20140205
  2. 5-FU [Concomitant]
     Indication: RECTAL CANCER
     Dosage: STRENGTH-400MG/M2
     Route: 042
     Dates: start: 20140205
  3. 5-FU [Concomitant]
     Indication: RECTAL CANCER
     Dosage: STRENGTH-2400MG/M2
     Route: 042
  4. FOLINIC ACID [Concomitant]
     Dosage: STRENGTH-200MG/M2
     Route: 042
     Dates: start: 20140205

REACTIONS (8)
  - Necrosis [Recovering/Resolving]
  - Swelling face [Recovering/Resolving]
  - Pyrexia [Recovering/Resolving]
  - Skin warm [Recovering/Resolving]
  - Skin lesion [Recovering/Resolving]
  - Pain [Recovering/Resolving]
  - Paraesthesia [Recovering/Resolving]
  - Gingivitis [Recovering/Resolving]
